FAERS Safety Report 19840891 (Version 7)
Quarter: 2021Q4

REPORT INFORMATION
  Report Type: Report from Study
  Country: GT (occurrence: GT)
  Receive Date: 20210916
  Receipt Date: 20211020
  Transmission Date: 20220303
  Serious: Yes (Death, Hospitalization)
  Sender: FDA-Public Use
  Company Number: GT-EISAI MEDICAL RESEARCH-EC-2021-099656

PATIENT
  Age: 73 Year
  Sex: Female
  Weight: 45 kg

DRUGS (17)
  1. LENVATINIB [Suspect]
     Active Substance: LENVATINIB
     Indication: Gastrooesophageal cancer
     Route: 048
     Dates: start: 20210722, end: 20210912
  2. PEMBROLIZUMAB [Suspect]
     Active Substance: PEMBROLIZUMAB
     Indication: Gastrooesophageal cancer
     Route: 041
     Dates: start: 20210722, end: 20210722
  3. PEMBROLIZUMAB [Suspect]
     Active Substance: PEMBROLIZUMAB
     Route: 041
     Dates: start: 20210902, end: 20210902
  4. OXALIPLATIN [Suspect]
     Active Substance: OXALIPLATIN
     Indication: Gastrooesophageal cancer
     Route: 041
     Dates: start: 20210722, end: 20210820
  5. OXALIPLATIN [Suspect]
     Active Substance: OXALIPLATIN
     Route: 041
     Dates: start: 20210902, end: 20210902
  6. LEUCOVORIN [Suspect]
     Active Substance: LEUCOVORIN
     Indication: Gastrooesophageal cancer
     Route: 041
     Dates: start: 20210722, end: 20210820
  7. LEUCOVORIN [Suspect]
     Active Substance: LEUCOVORIN
     Route: 041
     Dates: start: 20210902, end: 20210902
  8. FLUOROURACIL [Suspect]
     Active Substance: FLUOROURACIL
     Indication: Gastrooesophageal cancer
     Route: 041
     Dates: start: 20210722, end: 20210820
  9. FLUOROURACIL [Suspect]
     Active Substance: FLUOROURACIL
     Route: 041
     Dates: start: 20210722, end: 20210820
  10. FLUOROURACIL [Suspect]
     Active Substance: FLUOROURACIL
     Route: 041
     Dates: start: 20210902, end: 20210902
  11. FLUOROURACIL [Suspect]
     Active Substance: FLUOROURACIL
     Route: 041
     Dates: start: 20210902, end: 20210904
  12. ESOMEPRAZOLE. [Concomitant]
     Active Substance: ESOMEPRAZOLE MAGNESIUM
     Dates: start: 20210709
  13. ONDANSETRON [Concomitant]
     Active Substance: ONDANSETRON
     Dates: start: 20210902, end: 20210902
  14. EUTHYROX [Concomitant]
     Active Substance: LEVOTHYROXINE SODIUM
     Dates: start: 20210902
  15. CANDESARTAN [Concomitant]
     Active Substance: CANDESARTAN
     Dates: start: 20210902
  16. CLOBETASOL PROPIONATE [Concomitant]
     Active Substance: CLOBETASOL PROPIONATE
     Dates: start: 20210902
  17. UREA [Concomitant]
     Active Substance: UREA
     Dates: start: 20210902

REACTIONS (1)
  - Upper gastrointestinal haemorrhage [Fatal]

NARRATIVE: CASE EVENT DATE: 20210913
